FAERS Safety Report 5193498-5 (Version None)
Quarter: 2006Q4

REPORT INFORMATION
  Report Type: 
  Country: None (occurrence: None)
  Receive Date: 20061228
  Receipt Date: 20060609
  Transmission Date: 20070319
  Serious: No
  Sender: FDA-Public Use
  Company Number: US-GLAXOSMITHKLINE-A0608503A

PATIENT
  Age: 64 Year
  Sex: Female

DRUGS (2)
  1. FLONASE [Suspect]
     Indication: SINUS DISORDER
     Dosage: 1SPR AS REQUIRED
     Route: 045
  2. PREVACID [Concomitant]

REACTIONS (1)
  - HYPOAESTHESIA ORAL [None]
